FAERS Safety Report 23197133 (Version 1)
Quarter: 2023Q4

REPORT INFORMATION
  Report Type: Report from Study
  Country: IL (occurrence: IL)
  Receive Date: 20231117
  Receipt Date: 20231117
  Transmission Date: 20240109
  Serious: Yes (Hospitalization)
  Sender: FDA-Public Use
  Company Number: IL-JNJFOC-20220657242

PATIENT
  Age: 72 Year
  Sex: Male

DRUGS (4)
  1. IBRUTINIB [Suspect]
     Active Substance: IBRUTINIB
     Indication: Chronic lymphocytic leukaemia
     Route: 048
     Dates: start: 20220621, end: 20220624
  2. ODOMZO [Concomitant]
     Active Substance: SONIDEGIB
     Indication: Product used for unknown indication
     Dates: start: 20211020
  3. RAFASSAL [Concomitant]
     Indication: Product used for unknown indication
     Dates: start: 20070101
  4. ALLOPURINOL [Concomitant]
     Active Substance: ALLOPURINOL
     Indication: Product used for unknown indication
     Dates: start: 20220621

REACTIONS (1)
  - Pneumonia klebsiella [Recovered/Resolved]

NARRATIVE: CASE EVENT DATE: 20220625
